FAERS Safety Report 4457777-9 (Version None)
Quarter: 2004Q3

REPORT INFORMATION
  Report Type: 
  Country: None (occurrence: None)
  Receive Date: 20040922
  Receipt Date: 20040909
  Transmission Date: 20050211
  Serious: Yes (Other)
  Sender: FDA-Public Use
  Company Number: 2004065273

PATIENT
  Age: 76 Year
  Sex: Male

DRUGS (10)
  1. GABAPENTIN [Suspect]
     Indication: DEMENTIA
     Dosage: 200 MG (100 MG, 2 IN 1D), ORAL
     Route: 048
     Dates: start: 20040830, end: 20040907
  2. RIVASTIGMINE TARTRATE (RIVASTIGMINE TARTRATE0 [Concomitant]
  3. RAMIPRIL [Concomitant]
  4. CALCIUM (CALCIUM) [Concomitant]
  5. OXAZEPAM [Concomitant]
  6. WARFARIN SODIUM [Concomitant]
  7. FLUTICASONE PROPIONATE [Concomitant]
  8. SALBUTAMOL (SALBUTAMOL) [Concomitant]
  9. PANTOPRAZOLE (PANTOPRAZOLE) [Concomitant]
  10. ALLOPURINOL [Concomitant]

REACTIONS (3)
  - ABASIA [None]
  - PLEUROTHOTONUS [None]
  - WHEELCHAIR USER [None]
